FAERS Safety Report 16122382 (Version 1)
Quarter: 2019Q2

REPORT INFORMATION
  Report Type: Spontaneous
  Country: US (occurrence: US)
  Receive Date: 20190326
  Receipt Date: 20190326
  Transmission Date: 20190711
  Serious: Yes (Hospitalization, Disabling)
  Sender: FDA-Public Use
  Company Number: None

PATIENT
  Age: 86 Year
  Sex: Female
  Weight: 58.5 kg

DRUGS (7)
  1. MULTI VITAMIN [Concomitant]
     Active Substance: VITAMINS
  2. SOMADERM GEL [Suspect]
     Active Substance: HOMEOPATHICS
     Indication: ARTHRALGIA
     Dosage: ?          OTHER STRENGTH:PUMP;QUANTITY:1 PUMP;?
     Route: 061
     Dates: start: 20180901, end: 20190120
  3. SOMADERM GEL [Suspect]
     Active Substance: HOMEOPATHICS
     Indication: STRESS
     Dosage: ?          OTHER STRENGTH:PUMP;QUANTITY:1 PUMP;?
     Route: 061
     Dates: start: 20180901, end: 20190120
  4. SHINGLES MEDICATION [Concomitant]
  5. HIGH BLOOD PRESSURE MEDS [Concomitant]
  6. SOMADERM GEL [Suspect]
     Active Substance: HOMEOPATHICS
     Indication: SLEEP DISORDER
     Dosage: ?          OTHER STRENGTH:PUMP;QUANTITY:1 PUMP;?
     Route: 061
     Dates: start: 20180901, end: 20190120
  7. REFLUX MEDICATION [Concomitant]

REACTIONS (1)
  - Transient ischaemic attack [None]

NARRATIVE: CASE EVENT DATE: 20190112
